FAERS Safety Report 4525684-9 (Version None)
Quarter: 2004Q4

REPORT INFORMATION
  Report Type: 
  Country: None (occurrence: None)
  Receive Date: 20041116
  Receipt Date: 20040809
  Transmission Date: 20050328
  Serious: No
  Sender: FDA-Public Use
  Company Number: S04-USA-05908-01

PATIENT
  Age: 71 Year
  Sex: Female

DRUGS (1)
  1. NAMENDA [Suspect]
     Indication: DEMENTIA
     Dosage: 5 MG ONCE PO
     Route: 048
     Dates: start: 20040809, end: 20040809

REACTIONS (3)
  - DIZZINESS [None]
  - FEELING ABNORMAL [None]
  - MEDICATION ERROR [None]
